FAERS Safety Report 10071069 (Version 1)
Quarter: 2014Q2

REPORT INFORMATION
  Report Type: Spontaneous
  Country: US (occurrence: US)
  Receive Date: 20140410
  Receipt Date: 20140410
  Transmission Date: 20141212
  Serious: Yes (Death)
  Sender: FDA-Public Use
  Company Number: US-ELI_LILLY_AND_COMPANY-US201404001629

PATIENT
  Sex: 0

DRUGS (5)
  1. EFFIENT [Suspect]
     Indication: PERCUTANEOUS CORONARY INTERVENTION
     Dosage: 60 MG, SINGLE
     Route: 065
  2. EFFIENT [Suspect]
     Dosage: 10 MG, UNKNOWN
     Route: 065
  3. ASPIRIN [Concomitant]
     Indication: PRODUCT USED FOR UNKNOWN INDICATION
     Dosage: 325 MG, UNKNOWN
     Route: 065
  4. BIVALIRUDIN [Concomitant]
     Indication: ANTICOAGULANT THERAPY
     Dosage: 0.75 MG/KG, SINGLE
     Route: 042
  5. BIVALIRUDIN [Concomitant]
     Dosage: 1.75 MG/KG, EVERY HOUR
     Route: 042

REACTIONS (1)
  - Death [Fatal]
